FAERS Safety Report 23735865 (Version 2)
Quarter: 2025Q2

REPORT INFORMATION
  Report Type: Spontaneous
  Country: US (occurrence: US)
  Receive Date: 20240412
  Receipt Date: 20250516
  Transmission Date: 20250717
  Serious: Yes (Death, Hospitalization)
  Sender: MYLAN
  Company Number: US-MYLANLABS-2024M1031899

PATIENT
  Age: 29 Year
  Sex: Male

DRUGS (7)
  1. COLCHICINE [Suspect]
     Active Substance: COLCHICINE
     Indication: Myopericarditis
  2. CARVEDILOL [Suspect]
     Active Substance: CARVEDILOL
     Indication: Myopericarditis
  3. NOREPINEPHRINE [Suspect]
     Active Substance: NOREPINEPHRINE
     Indication: Cardiogenic shock
     Dosage: 16 MILLIGRAM, QMINUTE
  4. VASOPRESSIN [Suspect]
     Active Substance: VASOPRESSIN
     Indication: Cardiogenic shock
     Dosage: UNK, QMINUTE; 0.04?U/MIN
  5. DOBUTAMINE [Suspect]
     Active Substance: DOBUTAMINE HYDROCHLORIDE
     Indication: Cardiogenic shock
     Dosage: 7.5 MILLIGRAM/KILOGRAM, QMINUTE
  6. CALCIUM [Suspect]
     Active Substance: CALCIUM
     Indication: Overdose
  7. INSULIN NOS [Suspect]
     Active Substance: INSULIN NOS
     Indication: Overdose

REACTIONS (14)
  - Completed suicide [Fatal]
  - Intentional overdose [Fatal]
  - Cardiogenic shock [Fatal]
  - Distributive shock [Fatal]
  - Multiple organ dysfunction syndrome [Fatal]
  - Right ventricular failure [Fatal]
  - Acute respiratory distress syndrome [Fatal]
  - Respiratory gas exchange disorder [Fatal]
  - Renal failure [Fatal]
  - Hepatic failure [Fatal]
  - Metabolic acidosis [Fatal]
  - Respiratory acidosis [Fatal]
  - Drug ineffective [Fatal]
  - Off label use [Unknown]
